FAERS Safety Report 5568364-3 (Version None)
Quarter: 2007Q4

REPORT INFORMATION
  Report Type: 
  Country: None (occurrence: None)
  Receive Date: 20071220
  Receipt Date: 20071213
  Transmission Date: 20080405
  Serious: Yes (Other)
  Sender: FDA-Public Use
  Company Number: PHRM2007FR02820

PATIENT
  Sex: Female

DRUGS (2)
  1. LUTENYL [Concomitant]
     Route: 048
  2. ESTRADERM [Suspect]
     Dosage: 50 MICROG/24H
     Route: 062
     Dates: start: 20061101

REACTIONS (15)
  - APPLICATION SITE REACTION [None]
  - ASTHMA [None]
  - CHEST PAIN [None]
  - HEADACHE [None]
  - HERPES ZOSTER [None]
  - HORMONE LEVEL ABNORMAL [None]
  - HOT FLUSH [None]
  - HYPERTRICHOSIS [None]
  - MALAISE [None]
  - NECK PAIN [None]
  - PAIN [None]
  - SKIN LESION [None]
  - SWELLING [None]
  - THYROID DISORDER [None]
  - URINARY TRACT DISORDER [None]
